FAERS Safety Report 23095831 (Version 1)
Quarter: 2023Q4

REPORT INFORMATION
  Report Type: Spontaneous
  Country: US (occurrence: None)
  Receive Date: 20231020
  Receipt Date: 20231020
  Transmission Date: 20240110
  Serious: Yes (Disabling)
  Sender: FDA-Public Use
  Company Number: None

PATIENT
  Age: 64 Year
  Sex: Male
  Weight: 69.75 kg

DRUGS (1)
  1. LEVAQUIN [Suspect]
     Active Substance: LEVOFLOXACIN
     Indication: Urinary tract infection
     Dates: start: 20221017, end: 20221024

REACTIONS (8)
  - Pain [None]
  - Night sweats [None]
  - Myalgia [None]
  - Tendon pain [None]
  - Paraesthesia [None]
  - Crepitations [None]
  - Musculoskeletal stiffness [None]
  - Muscle spasms [None]

NARRATIVE: CASE EVENT DATE: 20221017
